FAERS Safety Report 20824443 (Version 1)
Quarter: 2022Q2

REPORT INFORMATION
  Report Type: Other
  Country: GB (occurrence: GB)
  Receive Date: 20220513
  Receipt Date: 20220513
  Transmission Date: 20220721
  Serious: Yes (Other)
  Sender: FDA-Public Use
  Company Number: None

PATIENT

DRUGS (19)
  1. METFORMIN [Suspect]
     Active Substance: METFORMIN HYDROCHLORIDE
     Indication: Ill-defined disorder
     Dosage: UNK
     Route: 065
     Dates: start: 20220117
  2. CALCIUM CARBONATE\CHOLECALCIFEROL [Concomitant]
     Active Substance: CALCIUM CARBONATE\CHOLECALCIFEROL
     Indication: Ill-defined disorder
     Dosage: CHEW ONE DAILY TO HELP PROTECT BONES
     Route: 065
     Dates: start: 20210929
  3. AMITRIPTYLINE HYDROCHLORIDE [Concomitant]
     Active Substance: AMITRIPTYLINE HYDROCHLORIDE
     Indication: Ill-defined disorder
     Dosage: 3 NOCTE
     Route: 065
     Dates: start: 20210929
  4. ASPIRIN [Concomitant]
     Active Substance: ASPIRIN
     Indication: Ill-defined disorder
     Dosage: ONE TO BE TAKEN DAILY
     Route: 065
     Dates: start: 20210929
  5. ATORVASTATIN [Concomitant]
     Active Substance: ATORVASTATIN
     Indication: Ill-defined disorder
     Dosage: ONE TO BE TAKEN EACH NIGHT
     Route: 065
     Dates: start: 20210929
  6. BISOPROLOL [Concomitant]
     Active Substance: BISOPROLOL
     Indication: Ill-defined disorder
     Dosage: ONE TO BE TAKEN DAILY
     Route: 065
     Dates: start: 20210929
  7. CAPSAICIN [Concomitant]
     Active Substance: CAPSAICIN
     Indication: Ill-defined disorder
     Dosage: TO BE APPLIED FOUR TIMES A DAY ON THE AFFECTED
     Route: 065
     Dates: start: 20220208, end: 20220218
  8. BECLOMETHASONE DIPROPIONATE [Concomitant]
     Active Substance: BECLOMETHASONE DIPROPIONATE
     Indication: Ill-defined disorder
     Dosage: TWO PUFFS TO BE INHALED TWICE DAILY
     Dates: start: 20210929
  9. FUROSEMIDE [Concomitant]
     Active Substance: FUROSEMIDE
     Indication: Ill-defined disorder
     Dosage: 1 DOSAGE FORM, QD IN MORNING
     Route: 065
     Dates: start: 20220208, end: 20220308
  10. FUSIDIC ACID [Concomitant]
     Active Substance: FUSIDIC ACID
     Indication: Ill-defined disorder
     Dosage: APPLY TO THE AFFECTED AREA THREE TO FOUR TIMES ...
     Route: 065
     Dates: start: 20210929
  11. GABAPENTIN [Concomitant]
     Active Substance: GABAPENTIN
     Indication: Ill-defined disorder
     Dosage: 2 TO BE TAKEN THREE TIMES A DAY
     Route: 065
     Dates: start: 20210929
  12. POLYETHYLENE GLYCOLS [Concomitant]
     Active Substance: POLYETHYLENE GLYCOLS
     Indication: Ill-defined disorder
     Dosage: FOUR SACHETS DAILY
     Route: 065
     Dates: start: 20210929
  13. MOVICOL [Concomitant]
     Active Substance: POLYETHYLENE GLYCOL 3350\POTASSIUM CHLORIDE\SODIUM BICARBONATE\SODIUM CHLORIDE
     Indication: Ill-defined disorder
     Dosage: FOUR SACHETS DAILY
     Route: 065
     Dates: start: 20220209, end: 20220210
  14. OMEPRAZOLE [Concomitant]
     Active Substance: OMEPRAZOLE
     Indication: Ill-defined disorder
     Dosage: 1, BID
     Route: 065
     Dates: start: 20210929
  15. ACETAMINOPHEN [Concomitant]
     Active Substance: ACETAMINOPHEN
     Indication: Ill-defined disorder
     Dosage: ONE TO TWO TO BE TAKEN FORE TIMES A DAY AS REQ
     Route: 065
     Dates: start: 20210929
  16. PERINDOPRIL ERBUMINE [Concomitant]
     Active Substance: PERINDOPRIL ERBUMINE
     Indication: Ill-defined disorder
     Dosage: TAKE ONE DAILY
     Route: 065
     Dates: start: 20210929
  17. ALBUTEROL [Concomitant]
     Active Substance: ALBUTEROL
     Indication: Ill-defined disorder
     Dosage: TAKE 2 PUFFS AS REQUIRED UPTO FOUR TIMES DAILY
     Route: 065
     Dates: start: 20211119
  18. TICAGRELOR [Concomitant]
     Active Substance: TICAGRELOR
     Indication: Ill-defined disorder
     Dosage: 1 DOSAGE FORM, BID
     Route: 065
     Dates: start: 20210929
  19. CARBOMER [Concomitant]
     Active Substance: CARBOMER
     Indication: Ill-defined disorder
     Dosage: ONE DROP AS NEEDED
     Route: 065
     Dates: start: 20210929

REACTIONS (1)
  - Adverse drug reaction [Not Recovered/Not Resolved]

NARRATIVE: CASE EVENT DATE: 20220429
